FAERS Safety Report 10444634 (Version 1)
Quarter: 2014Q3

REPORT INFORMATION
  Report Type: Spontaneous
  Country: JP (occurrence: JP)
  Receive Date: 20140910
  Receipt Date: 20140910
  Transmission Date: 20150326
  Serious: No
  Sender: FDA-Public Use
  Company Number: PHHY2012JP136036

PATIENT
  Age: 88 Year
  Sex: Male

DRUGS (4)
  1. TASIGNA [Suspect]
     Active Substance: NILOTINIB
     Dosage: 200 MG, UNK
  2. SPRYCEL [Concomitant]
     Active Substance: DASATINIB
     Dosage: 20 MG, UNK
  3. TASIGNA [Suspect]
     Active Substance: NILOTINIB
     Dosage: 400 MG, UNK
  4. TASIGNA [Suspect]
     Active Substance: NILOTINIB
     Dosage: 200 MG, UNK

REACTIONS (1)
  - Platelet count decreased [Unknown]
